FAERS Safety Report 5861296-2 (Version None)
Quarter: 2008Q3

REPORT INFORMATION
  Report Type: 
  Country: None (occurrence: None)
  Receive Date: 20080827
  Receipt Date: 20080410
  Transmission Date: 20090109
  Serious: No
  Sender: FDA-Public Use
  Company Number: US-ABBOTT-08P-163-0446505-00

PATIENT
  Sex: Female
  Weight: 81.72 kg

DRUGS (7)
  1. COATED PDS [Suspect]
     Indication: BLOOD CHOLESTEROL INCREASED
     Dosage: ONCE AT NIGHT
     Route: 048
     Dates: start: 20080408
  2. COATED PDS [Suspect]
     Indication: BLOOD TRIGLYCERIDES INCREASED
  3. ZOLPIDEM TARTRATE [Concomitant]
     Indication: INSOMNIA
  4. BLOOD PRESSURE MEDICATION [Concomitant]
     Indication: HYPERTENSION
  5. PAIN PILLS [Concomitant]
     Indication: SPINAL DISORDER
  6. PAIN PILLS [Concomitant]
     Indication: BACK DISORDER
  7. JUICE PLUS VITAMINS [Concomitant]
     Indication: DRUG USE FOR UNKNOWN INDICATION

REACTIONS (3)
  - FLUSHING [None]
  - INITIAL INSOMNIA [None]
  - NOCTURIA [None]
